FAERS Safety Report 5484785-1 (Version None)
Quarter: 2007Q4

REPORT INFORMATION
  Report Type: 
  Country: None (occurrence: None)
  Receive Date: 20071010
  Receipt Date: 20070928
  Transmission Date: 20080405
  Serious: Yes (Other)
  Sender: FDA-Public Use
  Company Number: DSM-2007-00738

PATIENT
  Sex: Female

DRUGS (7)
  1. OLMESARTAN MEDOXOMIL [Suspect]
  2. ONE-ALPHA (ALFACALCIDOL) (0.5 MICROGRAM) (ALFACALCIDOL) [Suspect]
     Dosage: 0.5 MCG (0.5 MCG, 1 IN 1 D), ORAL
     Route: 048
     Dates: start: 20000101
  3. ARANESP [Concomitant]
  4. CINACALCET (CALCIUM) (30 MILLIGRAM) (CALCIUM) [Concomitant]
  5. LABETALOL (LABETALOL) (200 MILLIGRAM) (LABETALOL) [Concomitant]
  6. OMEPRAZOLE (OMEPRAZOLE) (20 MILLIGRAM) (OMEPRAZOLE) [Concomitant]
  7. SEVELAMER (SEVELAMER) (800 MILLIGRAM) (SEVELAMER) [Concomitant]

REACTIONS (2)
  - ALOPECIA [None]
  - HAIR TEXTURE ABNORMAL [None]
